FAERS Safety Report 7355503-7 (Version None)
Quarter: 2011Q1

REPORT INFORMATION
  Report Type: 
  Country: None (occurrence: None)
  Receive Date: 20110316
  Receipt Date: 20110310
  Transmission Date: 20110831
  Serious: Yes (Other)
  Sender: FDA-Public Use
  Company Number: A0911719A

PATIENT
  Age: 38 Year
  Sex: Female

DRUGS (3)
  1. CAPECITABINE [Suspect]
     Dosage: 2000MGM2 SEE DOSAGE TEXT
     Route: 048
     Dates: start: 20100701
  2. TYKERB [Suspect]
     Dosage: 1250MGM2 PER DAY
     Route: 048
     Dates: start: 20100701
  3. ZOLEDRONIC ACID [Concomitant]
     Dates: start: 20090501

REACTIONS (4)
  - PALMAR-PLANTAR ERYTHRODYSAESTHESIA SYNDROME [None]
  - NAUSEA [None]
  - DIARRHOEA [None]
  - THERAPY RESPONDER [None]
